FAERS Safety Report 4339632-8 (Version None)
Quarter: 2004Q2

REPORT INFORMATION
  Report Type: 
  Country: None (occurrence: None)
  Receive Date: 20040415
  Receipt Date: 20030411
  Transmission Date: 20050107
  Serious: Yes (Hospitalization, Other)
  Sender: FDA-Public Use
  Company Number: US-MERCK-0304USA01283

PATIENT
  Age: 74 Year
  Sex: Female
  Weight: 49 kg

DRUGS (8)
  1. PREVACID [Concomitant]
     Route: 065
  2. VIOXX [Suspect]
     Indication: BACK PAIN
     Route: 048
     Dates: end: 20011101
  3. ASPIRIN [Concomitant]
     Route: 065
  4. KLONOPIN [Concomitant]
     Route: 065
  5. PREMARIN [Concomitant]
     Route: 065
  6. FLONASE [Concomitant]
     Route: 065
  7. LOPID [Concomitant]
     Route: 065
  8. VIOXX [Suspect]
     Route: 048

REACTIONS (49)
  - ABDOMINAL DISTENSION [None]
  - ACUTE MYOCARDIAL INFARCTION [None]
  - ANAEMIA [None]
  - ASTHENIA [None]
  - ATRIAL FIBRILLATION [None]
  - BACK PAIN [None]
  - BLOOD CREATINE PHOSPHOKINASE INCREASED [None]
  - BLOOD PRESSURE DECREASED [None]
  - BLOOD PRESSURE INCREASED [None]
  - BODY TEMPERATURE DECREASED [None]
  - BRONCHITIS [None]
  - CARDIAC ARREST [None]
  - CARDIAC FAILURE CONGESTIVE [None]
  - CHEST PAIN [None]
  - CHEST WALL PAIN [None]
  - CHRONIC OBSTRUCTIVE AIRWAYS DISEASE [None]
  - CONTUSION [None]
  - CORONARY ARTERY ATHEROSCLEROSIS [None]
  - CORONARY ARTERY DISEASE [None]
  - DEPRESSION [None]
  - DIZZINESS [None]
  - DYSPEPSIA [None]
  - DYSPNOEA [None]
  - EATING DISORDER [None]
  - ELECTROCARDIOGRAM ST SEGMENT ABNORMAL [None]
  - ELECTROCARDIOGRAM ST SEGMENT ELEVATION [None]
  - EMOTIONAL DISTRESS [None]
  - FALL [None]
  - GASTROOESOPHAGEAL REFLUX DISEASE [None]
  - HAEMOTHORAX [None]
  - HYPERCHOLESTEROLAEMIA [None]
  - HYPERTENSION [None]
  - HYPOTENSION [None]
  - HYPOTHYROIDISM [None]
  - HYPOXIA [None]
  - INJURY [None]
  - INSOMNIA [None]
  - INTESTINAL DILATATION [None]
  - IRON DEFICIENCY ANAEMIA [None]
  - LUMBAR SPINAL STENOSIS [None]
  - MITRAL VALVE INCOMPETENCE [None]
  - OXYGEN SATURATION DECREASED [None]
  - PLATELET COUNT INCREASED [None]
  - PLEURAL EFFUSION [None]
  - POST PROCEDURAL COMPLICATION [None]
  - SPINAL OSTEOARTHRITIS [None]
  - SPONDYLITIS [None]
  - TRICUSPID VALVE INCOMPETENCE [None]
  - VENTRICULAR FIBRILLATION [None]
